FAERS Safety Report 8834740 (Version 1)
Quarter: 2012Q4

REPORT INFORMATION
  Report Type: 
  Country: DE (occurrence: DE)
  Receive Date: 20121010
  Receipt Date: 20121010
  Transmission Date: 20130627
  Serious: Yes (Hospitalization, Congenital Anomaly, Other)
  Sender: FDA-Public Use
  Company Number: DE-TEVA-361389GER

PATIENT
  Age: 0 Year
  Sex: Male

DRUGS (12)
  1. OXALIPLATIN [Suspect]
     Route: 064
  2. FLUOROURACIL [Suspect]
     Route: 064
  3. FOLINIC ACID [Suspect]
     Route: 064
  4. UTROGEST [Concomitant]
     Route: 064
  5. FOLIC ACID [Concomitant]
     Route: 064
  6. NEXIUM [Concomitant]
     Route: 064
  7. L-THYROXIN [Concomitant]
     Route: 064
  8. ZOFRAN ZYDIS 8 MG LINGUAL [Concomitant]
     Route: 064
  9. SELEN [Concomitant]
     Route: 064
  10. FORTECORTIN [Concomitant]
     Route: 064
  11. FENISTIL [Concomitant]
     Route: 064
  12. PASPERTIN RETARD [Concomitant]
     Route: 064

REACTIONS (5)
  - Pulmonary artery stenosis congenital [Unknown]
  - Tricuspid valve incompetence [Unknown]
  - Right ventricular hypertrophy [Unknown]
  - Ductus arteriosus premature closure [Recovered/Resolved with Sequelae]
  - Atrial septal defect [Recovered/Resolved]
